FAERS Safety Report 9000307 (Version 2)
Quarter: 2013Q1

REPORT INFORMATION
  Report Type: Spontaneous
  Country: AU (occurrence: AU)
  Receive Date: 20130107
  Receipt Date: 20130306
  Transmission Date: 20140127
  Serious: Yes (Other)
  Sender: FDA-Public Use
  Company Number: AU-009507513-1301AUS001080

PATIENT
  Age: 68 Year
  Sex: Male

DRUGS (2)
  1. TEMOZOLOMIDE [Suspect]
     Indication: GLIOBLASTOMA MULTIFORME
     Dosage: DAILY 75 MG/M2 OVER 6 WEEKS
     Route: 048
     Dates: start: 2010, end: 2010
  2. TEMOZOLOMIDE [Suspect]
     Dosage: 150 MG/M2, FOR 5 OF 28 DAYS
     Route: 048
     Dates: start: 201006, end: 2010

REACTIONS (1)
  - Diffuse large B-cell lymphoma [Unknown]
